FAERS Safety Report 16471989 (Version 1)
Quarter: 2019Q2

REPORT INFORMATION
  Report Type: Other
  Country: SI (occurrence: SI)
  Receive Date: 20190625
  Receipt Date: 20190625
  Transmission Date: 20190711
  Serious: Yes (Hospitalization)
  Sender: FDA-Public Use
  Company Number: SI-CELLTRION INC.-2019SI021947

PATIENT

DRUGS (2)
  1. INFLIXIMAB (UNKNOWN) [Suspect]
     Active Substance: INFLIXIMAB
     Dosage: 10 MG/KG EVERY 4 WEEKS
     Route: 065
  2. INFLIXIMAB (UNKNOWN) [Suspect]
     Active Substance: INFLIXIMAB
     Indication: COLITIS ULCERATIVE
     Dosage: DAY 0 AND DAY 7
     Route: 065
     Dates: start: 201807

REACTIONS (6)
  - Arthritis enteropathic [Unknown]
  - Diarrhoea haemorrhagic [Unknown]
  - Off label use [Unknown]
  - Incorrect dose administered [Unknown]
  - Pyrexia [Unknown]
  - Colectomy [Unknown]

NARRATIVE: CASE EVENT DATE: 201807
